FAERS Safety Report 5537203-9 (Version None)
Quarter: 2007Q4

REPORT INFORMATION
  Report Type: 
  Country: None (occurrence: None)
  Receive Date: 20071207
  Receipt Date: 20071126
  Transmission Date: 20080405
  Serious: Yes (Hospitalization)
  Sender: FDA-Public Use
  Company Number: FR-WYE-G00677207

PATIENT
  Sex: Female

DRUGS (11)
  1. EFFEXOR XR [Suspect]
     Route: 048
     Dates: end: 20070914
  2. EUPRESSYL [Suspect]
     Route: 048
     Dates: end: 20070914
  3. LOXEN [Suspect]
     Route: 048
     Dates: end: 20070914
  4. VALIUM [Suspect]
     Route: 048
     Dates: end: 20070914
  5. DIGOXIN [Concomitant]
     Route: 048
     Dates: end: 20070914
  6. DIFFU K [Concomitant]
     Route: 048
     Dates: end: 20070914
  7. FOSAMAX [Concomitant]
     Route: 048
  8. KARDEGIC [Concomitant]
     Route: 048
  9. STABLON [Concomitant]
     Route: 048
  10. DETENSIEL [Suspect]
     Route: 048
     Dates: end: 20070914
  11. VASTAREL [Concomitant]
     Route: 048
     Dates: end: 20070914

REACTIONS (7)
  - ANAEMIA [None]
  - ECCHYMOSIS [None]
  - ESCHERICHIA URINARY TRACT INFECTION [None]
  - EXTRASYSTOLES [None]
  - FALL [None]
  - ORTHOSTATIC HYPOTENSION [None]
  - WRIST FRACTURE [None]
